FAERS Safety Report 5307144-0 (Version None)
Quarter: 2007Q2

REPORT INFORMATION
  Report Type: 
  Country: None (occurrence: None)
  Receive Date: 20070420
  Receipt Date: 20070420
  Transmission Date: 20071010
  Serious: Yes (Other)
  Sender: FDA-Public Use
  Company Number: None

PATIENT
  Age: 48 Year
  Sex: Female
  Weight: 45.3597 kg

DRUGS (1)
  1. EFFEXOR [Suspect]
     Indication: MENOPAUSAL SYMPTOMS
     Dosage: 37.5 14 DAYS PO   75 14 DAYS PO
     Route: 048
     Dates: start: 20070316, end: 20070413

REACTIONS (1)
  - DRUG WITHDRAWAL SYNDROME [None]
